FAERS Safety Report 21672797 (Version 1)
Quarter: 2022Q4

REPORT INFORMATION
  Report Type: Spontaneous
  Country: ES (occurrence: ES)
  Receive Date: 20221202
  Receipt Date: 20221202
  Transmission Date: 20230113
  Serious: Yes (Other)
  Sender: FDA-Public Use
  Company Number: ES-PFIZER INC-PV202200103579

PATIENT
  Age: 61 Year
  Sex: Female

DRUGS (2)
  1. MEROPENEM [Suspect]
     Active Substance: MEROPENEM
     Indication: Pyrexia
     Dosage: UNK
     Route: 065
     Dates: start: 201209
  2. MEROPENEM [Suspect]
     Active Substance: MEROPENEM
     Indication: Vomiting

REACTIONS (3)
  - Skin exfoliation [Unknown]
  - Hypersensitivity [Recovered/Resolved]
  - Rash erythematous [Recovered/Resolved]

NARRATIVE: CASE EVENT DATE: 20120901
